FAERS Safety Report 5165625-7 (Version None)
Quarter: 2006Q4

REPORT INFORMATION
  Report Type: 
  Country: None (occurrence: None)
  Receive Date: 20061206
  Receipt Date: 20060810
  Transmission Date: 20070319
  Serious: Yes (Death)
  Sender: FDA-Public Use
  Company Number: US-GILEAD-2006-0010054

PATIENT
  Sex: Male
  Weight: 3.02 kg

DRUGS (2)
  1. TRUVADA [Suspect]
     Route: 064
     Dates: start: 20060718, end: 20060724
  2. KALETRA [Concomitant]
     Route: 064
     Dates: start: 20060718, end: 20060724

REACTIONS (11)
  - COAGULOPATHY [None]
  - CONTUSION [None]
  - DRUG EXPOSURE DURING PREGNANCY [None]
  - FONTANELLE BULGING [None]
  - HAEMORRHAGE INTRACRANIAL [None]
  - HYPOTONIA NEONATAL [None]
  - NEONATAL RESPIRATORY FAILURE [None]
  - PALLOR [None]
  - POOR PERIPHERAL CIRCULATION [None]
  - STILLBIRTH [None]
  - SUBARACHNOID HAEMORRHAGE [None]
